FAERS Safety Report 9206080 (Version 2)
Quarter: 2014Q1

REPORT INFORMATION
  Report Type: Spontaneous
  Country: US (occurrence: US)
  Receive Date: 20130403
  Receipt Date: 20140131
  Transmission Date: 20141002
  Serious: Yes (Other)
  Sender: FDA-Public Use
  Company Number: US-BAYER-2013-039912

PATIENT
  Age: 31 Year
  Sex: Female

DRUGS (7)
  1. YAZ [Suspect]
     Dosage: UNK
     Dates: start: 200605, end: 200905
  2. YASMIN [Suspect]
     Dosage: UNK
     Dates: start: 200605, end: 200905
  3. OCELLA [Suspect]
     Dosage: UNK
     Dates: start: 200605, end: 200905
  4. GIANVI [Suspect]
     Dosage: UNK
     Dates: start: 200605, end: 200905
  5. METFORMIN [Concomitant]
     Dosage: 1000 MG, LONG TERM USE
  6. ATENOLOL [Concomitant]
     Dosage: 50 MG, UNK
  7. GLYBURIDE [Concomitant]
     Dosage: 5 MG, UNK

REACTIONS (5)
  - Cholecystectomy [None]
  - Pain [None]
  - Injury [None]
  - Biliary dyskinesia [None]
  - Cholecystitis chronic [None]
